FAERS Safety Report 13455449 (Version 5)
Quarter: 2017Q3

REPORT INFORMATION
  Report Type: Report from Study
  Country: US (occurrence: US)
  Receive Date: 20170418
  Receipt Date: 20170921
  Transmission Date: 20171127
  Serious: Yes (Hospitalization, Other)
  Sender: FDA-Public Use
  Company Number: US-BAYER-2016-085578

PATIENT
  Age: 77 Year
  Sex: Female
  Weight: 91.61 kg

DRUGS (14)
  1. ADEMPAS [Suspect]
     Active Substance: RIOCIGUAT
     Indication: PULMONARY ARTERIAL HYPERTENSION
     Dosage: 2 MG, TID
     Route: 048
  2. ADEMPAS [Suspect]
     Active Substance: RIOCIGUAT
     Indication: PULMONARY ARTERIAL HYPERTENSION
     Dosage: 2.5 MG, TID
  3. ADEMPAS [Suspect]
     Active Substance: RIOCIGUAT
     Indication: PULMONARY ARTERIAL HYPERTENSION
     Dosage: 2.5 MG, TID
     Route: 048
  4. ADEMPAS [Suspect]
     Active Substance: RIOCIGUAT
     Indication: PULMONARY ARTERIAL HYPERTENSION
     Dosage: UNK
     Dates: start: 20160414
  5. REMODULIN [Concomitant]
     Active Substance: TREPROSTINIL
     Dosage: 1 NG/KG/MIN
  6. ADEMPAS [Suspect]
     Active Substance: RIOCIGUAT
     Indication: PULMONARY ARTERIAL HYPERTENSION
     Dosage: 2.5 MG, TID
     Route: 048
  7. ADEMPAS [Suspect]
     Active Substance: RIOCIGUAT
     Indication: PULMONARY ARTERIAL HYPERTENSION
     Dosage: 1.5 MG, TID
     Route: 048
  8. ADEMPAS [Suspect]
     Active Substance: RIOCIGUAT
     Indication: PULMONARY ARTERIAL HYPERTENSION
     Dosage: 2.5 MG, TID
     Route: 048
  9. REMODULIN [Concomitant]
     Active Substance: TREPROSTINIL
     Dosage: 11 NG/KG/MIN
  10. ADEMPAS [Suspect]
     Active Substance: RIOCIGUAT
     Indication: PULMONARY ARTERIAL HYPERTENSION
     Dosage: 1 MG, TID
     Route: 048
  11. ADEMPAS [Suspect]
     Active Substance: RIOCIGUAT
     Indication: PULMONARY ARTERIAL HYPERTENSION
     Dosage: 2.5 MG, TID
     Route: 048
  12. ADEMPAS [Suspect]
     Active Substance: RIOCIGUAT
     Indication: PULMONARY ARTERIAL HYPERTENSION
     Dosage: 2.5 MG, TID
     Route: 048
  13. REMODULIN [Concomitant]
     Active Substance: TREPROSTINIL
     Dosage: 20 NG/KG/MIN
  14. TYVASO [Concomitant]
     Active Substance: TREPROSTINIL
     Dosage: UNK

REACTIONS (33)
  - Gastrointestinal disorder [Recovering/Resolving]
  - Mental impairment [Unknown]
  - Asthenia [Unknown]
  - Peripheral swelling [Recovering/Resolving]
  - Insomnia [Unknown]
  - Joint swelling [Recovering/Resolving]
  - Epistaxis [Not Recovered/Not Resolved]
  - Rash pruritic [Unknown]
  - Blood pressure increased [Recovered/Resolved]
  - Syncope [Unknown]
  - Dizziness [None]
  - Headache [Unknown]
  - Fluid retention [Unknown]
  - Dyspnoea [Unknown]
  - Fall [None]
  - Vomiting [Not Recovered/Not Resolved]
  - Injection site discharge [Recovered/Resolved]
  - Decreased appetite [Unknown]
  - Nasal congestion [Unknown]
  - Cough [Recovering/Resolving]
  - Dizziness [Unknown]
  - Diarrhoea [Not Recovered/Not Resolved]
  - Pain in extremity [Unknown]
  - Orthopnoea [Unknown]
  - Skin discolouration [Unknown]
  - Nausea [Not Recovered/Not Resolved]
  - Dyspnoea [Unknown]
  - Oxygen therapy [None]
  - Skin discolouration [Recovered/Resolved]
  - Fatigue [Unknown]
  - Hypotension [Unknown]
  - Pain in jaw [Unknown]
  - Application site erythema [Unknown]

NARRATIVE: CASE EVENT DATE: 20160429
